FAERS Safety Report 8843045 (Version 3)
Quarter: 2012Q4

REPORT INFORMATION
  Report Type: 
  Country: JP (occurrence: JP)
  Receive Date: 20121016
  Receipt Date: 20121204
  Transmission Date: 20130627
  Serious: Yes (Other)
  Sender: FDA-Public Use
  Company Number: JP-GLAXOSMITHKLINE-B0837299A

PATIENT
  Age: 69 Year
  Sex: Male

DRUGS (6)
  1. SERETIDE [Suspect]
     Indication: ASTHMA
     Dosage: 500MCG Twice per day
     Route: 055
     Dates: start: 20090422
  2. PREDNISOLONE [Suspect]
     Indication: PRODUCT USED FOR UNKNOWN INDICATION
     Dosage: 20MG Per day
     Route: 048
     Dates: start: 20090902
  3. FLUTIDE DISKUS [Concomitant]
     Dosage: 400MCG Twice per day
     Route: 055
     Dates: start: 2009
  4. ITRIZOLE [Concomitant]
     Route: 048
  5. ALEROFF [Concomitant]
     Route: 048
  6. ALOSITOL [Concomitant]
     Route: 048

REACTIONS (1)
  - Haemorrhage subcutaneous [Unknown]
